FAERS Safety Report 7603068-4 (Version None)
Quarter: 2011Q3

REPORT INFORMATION
  Report Type: 
  Country: None (occurrence: None)
  Receive Date: 20110711
  Receipt Date: 20110711
  Transmission Date: 20111222
  Serious: Yes (Other)
  Sender: FDA-Public Use
  Company Number: None

PATIENT
  Age: 56 Year
  Sex: Male
  Weight: 99.7913 kg

DRUGS (1)
  1. PROSCAR [Suspect]
     Indication: PROSTATOMEGALY
     Dosage: 5MG ONE DAILY PO
     Route: 048
     Dates: start: 20110201, end: 20110303

REACTIONS (2)
  - ASTHENIA [None]
  - LOSS OF LIBIDO [None]
